FAERS Safety Report 25146159 (Version 2)
Quarter: 2025Q2

REPORT INFORMATION
  Report Type: Spontaneous
  Country: JP (occurrence: JP)
  Receive Date: 20250401
  Receipt Date: 20250411
  Transmission Date: 20250717
  Serious: No
  Sender: AMGEN
  Company Number: JP-AMGEN-JPNSP2025007754

PATIENT
  Age: 85 Year
  Sex: Female

DRUGS (12)
  1. EVENITY [Suspect]
     Active Substance: ROMOSOZUMAB-AQQG
     Indication: Osteoporosis
     Route: 058
     Dates: start: 20241227
  2. ATORVASTATIN [Concomitant]
     Active Substance: ATORVASTATIN
  3. EZETIMIBE [Concomitant]
     Active Substance: EZETIMIBE
  4. SITAGLIPTIN [Concomitant]
     Active Substance: SITAGLIPTIN
  5. EDOXABAN TOSYLATE [Concomitant]
     Active Substance: EDOXABAN TOSYLATE
     Dosage: 30 MILLIGRAM, QD
  6. ESOMEPRAZOLE [Concomitant]
     Active Substance: ESOMEPRAZOLE
  7. VIBEGRON [Concomitant]
     Active Substance: VIBEGRON
  8. BENIDIPINE HYDROCHLORIDE [Concomitant]
     Active Substance: BENIDIPINE HYDROCHLORIDE
  9. LOXOPROFEN [Concomitant]
     Active Substance: LOXOPROFEN
  10. BAZEDOXIFENE [Concomitant]
     Active Substance: BAZEDOXIFENE
  11. ELDECALCITOL [Concomitant]
     Active Substance: ELDECALCITOL
  12. SODIUM BICARBONATE [Concomitant]
     Active Substance: SODIUM BICARBONATE

REACTIONS (1)
  - Nail hypertrophy [Unknown]

NARRATIVE: CASE EVENT DATE: 20250114
